FAERS Safety Report 5310481-7 (Version None)
Quarter: 2007Q2

REPORT INFORMATION
  Report Type: 
  Country: None (occurrence: None)
  Receive Date: 20070427
  Receipt Date: 20070419
  Transmission Date: 20071010
  Serious: Yes (Hospitalization, Other)
  Sender: FDA-Public Use
  Company Number: US-PFIZER INC-2007032023

PATIENT
  Sex: Female

DRUGS (7)
  1. IRINOTECAN HYDROCHLORIDE SOLUTION, STERILE [Suspect]
     Dosage: DAILY DOSE:36MG
     Route: 042
     Dates: start: 20060808, end: 20060808
  2. CETUXIMAB [Suspect]
     Dosage: DAILY DOSE:270MG
     Route: 042
     Dates: start: 20060807, end: 20060807
  3. ALOXI [Concomitant]
  4. COLACE [Concomitant]
  5. BACLOFEN [Concomitant]
  6. LYRICA [Concomitant]
  7. LUPRON [Concomitant]

REACTIONS (9)
  - ABDOMINAL PAIN [None]
  - CHILLS [None]
  - DIARRHOEA [None]
  - HYPOTENSION [None]
  - LETHARGY [None]
  - LYMPHOPENIA [None]
  - NAUSEA [None]
  - PYREXIA [None]
  - VAGINAL HAEMORRHAGE [None]
